FAERS Safety Report 8518960-6 (Version None)
Quarter: 2012Q3

REPORT INFORMATION
  Report Type: 
  Country: None (occurrence: None)
  Receive Date: 20120718
  Receipt Date: 20120709
  Transmission Date: 20120928
  Serious: Yes (Hospitalization)
  Sender: FDA-Public Use
  Company Number: FR-GLAXOSMITHKLINE-B0813438A

PATIENT
  Age: 77 Year
  Sex: Female

DRUGS (7)
  1. OLMESARTAN MEDOXOMIL AND HYDROCHLOROTHIZIDE [Concomitant]
  2. CEFUROXIME [Suspect]
     Indication: OROPHARYNGEAL PAIN
     Route: 048
     Dates: start: 20120528, end: 20120606
  3. DIOSMINE [Concomitant]
  4. LEVOTHYROXINE SODIUM [Concomitant]
     Route: 048
  5. AMBROXOL [Suspect]
     Indication: PRODUCTIVE COUGH
     Route: 048
     Dates: start: 20120528, end: 20120606
  6. CELECTOL [Concomitant]
  7. DAFLON [Concomitant]

REACTIONS (5)
  - HAEMOPTYSIS [None]
  - PETECHIAE [None]
  - MOUTH HAEMORRHAGE [None]
  - PURPURA [None]
  - THROMBOCYTOPENIA [None]
